FAERS Safety Report 9482130 (Version 2)
Quarter: 2013Q3

REPORT INFORMATION
  Report Type: Spontaneous
  Country: GB (occurrence: GB)
  Receive Date: 20130828
  Receipt Date: 20130828
  Transmission Date: 20140515
  Serious: Yes (Other)
  Sender: FDA-Public Use
  Company Number: PHFR2012GB003264

PATIENT
  Age: 53 Year
  Sex: Male

DRUGS (4)
  1. CLOZARIL [Suspect]
     Indication: SCHIZOPHRENIA
     Dosage: 275 MG,
     Route: 048
     Dates: start: 20010701
  2. LITHIUM CARBONATE [Concomitant]
     Dosage: 800 MG,
     Route: 048
  3. ASPIRIN [Concomitant]
     Dosage: 75 MG,
     Route: 048
  4. SIMVASTATIN [Concomitant]
     Dosage: 40 MG,
     Route: 048

REACTIONS (1)
  - Haemoglobin decreased [Recovering/Resolving]
